FAERS Safety Report 8902027 (Version 1)
Quarter: 2012Q4

REPORT INFORMATION
  Report Type: 
  Country: US (occurrence: US)
  Receive Date: 20121112
  Receipt Date: 20121112
  Transmission Date: 20130627
  Serious: Yes (Death, Hospitalization)
  Sender: FDA-Public Use
  Company Number: PHHY2012US103917

PATIENT
  Age: 6 Year
  Sex: Female

DRUGS (2)
  1. CICLOSPORIN [Suspect]
     Indication: STEM CELL TRANSPLANT
  2. ANTIHYPERTENSIVES [Concomitant]

REACTIONS (8)
  - Thrombotic microangiopathy [Fatal]
  - Pulmonary arterial hypertension [Fatal]
  - Respiratory failure [Unknown]
  - Shock [Unknown]
  - Respiratory distress [Unknown]
  - Hypoxia [Unknown]
  - Renal failure acute [Unknown]
  - Hypertension [Unknown]
